FAERS Safety Report 4285319-X (Version None)
Quarter: 2004Q1

REPORT INFORMATION
  Report Type: 
  Country: None (occurrence: None)
  Receive Date: 20040202
  Receipt Date: 20040127
  Transmission Date: 20041129
  Serious: Yes (Hospitalization)
  Sender: FDA-Public Use
  Company Number: 2004-01-1730

PATIENT
  Age: 51 Year

DRUGS (1)
  1. TEMOZOLOMIDE CAPSULES  LIKE TEMODAR [Suspect]
     Indication: ASTROCYTOMA
     Dosage: D1-D5 Q28D ORAL
     Route: 048

REACTIONS (4)
  - HEADACHE [None]
  - INCOHERENT [None]
  - NASOPHARYNGITIS [None]
  - VOMITING [None]
